FAERS Safety Report 4536890-1 (Version None)
Quarter: 2004Q4

REPORT INFORMATION
  Report Type: 
  Country: None (occurrence: None)
  Receive Date: 20041223
  Receipt Date: 20041220
  Transmission Date: 20050328
  Serious: Yes (Death)
  Sender: FDA-Public Use
  Company Number: IT-GLAXOSMITHKLINE-B0362489A

PATIENT
  Age: 83 Year
  Sex: Male

DRUGS (1)
  1. AUGMENTIN '125' [Suspect]
     Dosage: 2000MG TWICE PER DAY
     Route: 042
     Dates: start: 20041214, end: 20041215

REACTIONS (4)
  - ARRHYTHMIA [None]
  - CARDIAC ARREST [None]
  - DERMATITIS EXFOLIATIVE [None]
  - LOSS OF CONSCIOUSNESS [None]
